FAERS Safety Report 14595553 (Version 5)
Quarter: 2019Q4

REPORT INFORMATION
  Report Type: Spontaneous
  Country: US (occurrence: US)
  Receive Date: 20180303
  Receipt Date: 20191120
  Transmission Date: 20200122
  Serious: No
  Sender: FDA-Public Use
  Company Number: US-JNJFOC-20180225558

PATIENT
  Sex: Female

DRUGS (1)
  1. WOMENS ROGAINE UNSCENTED [Suspect]
     Active Substance: MINOXIDIL
     Indication: ALOPECIA
     Dosage: THE LAST PRODUCT USED WAS 16/FEB/2018.
     Route: 065
     Dates: end: 20180216

REACTIONS (2)
  - Alopecia [Unknown]
  - Drug ineffective [Unknown]
